FAERS Safety Report 4474128-4 (Version None)
Quarter: 2004Q4

REPORT INFORMATION
  Report Type: 
  Country: None (occurrence: None)
  Receive Date: 20041008
  Receipt Date: 20040923
  Transmission Date: 20050328
  Serious: Yes (Hospitalization)
  Sender: FDA-Public Use
  Company Number: F01200401591

PATIENT
  Age: 62 Year
  Sex: Female

DRUGS (6)
  1. (OXALIPLATIN) - SOLUTOIN - 130 MG/M2 [Suspect]
     Indication: COLORECTAL CANCER METASTATIC
     Dosage: 130 MG/M2 Q3W; 2 HOURS - TIME ONSET :
     Route: 042
     Dates: end: 20040523
  2. (CAPECITABINE) - TABLET - 1000 MG/M2 [Suspect]
     Dosage: 1000 MG/M2 TWICE DAILY FROM D1 TO D14, Q3W; 2 WEEKS - TIME TO ONSET : 2 WEEKS 5 DAYS
     Route: 048
  3. (BEVACIZUMAB) - SOLUTION - 1 UNIT [Suspect]
     Dosage: 1 UNIT Q3W : TIME TO ONSET
     Route: 042
  4. SLOW FE (FERROUS SSULFATE) [Concomitant]
  5. RANITIDINE [Concomitant]
  6. NEOMYCIN [Concomitant]

REACTIONS (7)
  - ASTHENIA [None]
  - BLOOD UREA INCREASED [None]
  - DEHYDRATION [None]
  - ENCEPHALITIS [None]
  - GENERAL PHYSICAL HEALTH DETERIORATION [None]
  - HYPOKALAEMIA [None]
  - HYPONATRAEMIA [None]
